FAERS Safety Report 6147716-7 (Version None)
Quarter: 2009Q2

REPORT INFORMATION
  Report Type: 
  Country: None (occurrence: None)
  Receive Date: 20090408
  Receipt Date: 20071210
  Transmission Date: 20091009
  Serious: Yes (Hospitalization)
  Sender: FDA-Public Use
  Company Number: MX-NOVOPROD-268160

PATIENT
  Age: 12 Year
  Sex: Male
  Weight: 61.3 kg

DRUGS (3)
  1. LEVEMIR [Suspect]
     Indication: TYPE 1 DIABETES MELLITUS
     Dosage: 20 IU, QD
     Route: 058
     Dates: start: 20070911, end: 20070915
  2. HUMULIN N [Concomitant]
     Dosage: 45 IU, QD
  3. AMOXICILLIN [Concomitant]
     Dosage: 500 MG, BID

REACTIONS (3)
  - CHEMICAL POISONING [None]
  - HYPERGLYCAEMIA [None]
  - KETOSIS [None]
